FAERS Safety Report 16067624 (Version 14)
Quarter: 2022Q2

REPORT INFORMATION
  Report Type: Spontaneous
  Country: US (occurrence: US)
  Receive Date: 20190313
  Receipt Date: 20220613
  Transmission Date: 20220720
  Serious: Yes (Other)
  Sender: FDA-Public Use
  Company Number: US-PFIZER INC-2019105258

PATIENT
  Age: 68 Year
  Sex: Female
  Weight: 75 kg

DRUGS (5)
  1. TOVIAZ [Suspect]
     Active Substance: FESOTERODINE FUMARATE
     Indication: Hypertonic bladder
     Dosage: 8 MG, 1X/DAY
     Route: 048
  2. TOVIAZ [Suspect]
     Active Substance: FESOTERODINE FUMARATE
     Dosage: 8 MG, 2X/DAY
  3. CADUET [Concomitant]
     Active Substance: AMLODIPINE BESYLATE\ATORVASTATIN CALCIUM
     Indication: Blood pressure abnormal
     Dosage: UNK [5 MG/20 (MG)]
  4. CADUET [Concomitant]
     Active Substance: AMLODIPINE BESYLATE\ATORVASTATIN CALCIUM
     Indication: Blood cholesterol abnormal
  5. METFORMIN [Concomitant]
     Active Substance: METFORMIN HYDROCHLORIDE
     Indication: Diabetes mellitus
     Dosage: 500 MG, 1X/DAY (500 MG, ONCE A DAY, WITH SUPPER BY MOUTH)
     Route: 048

REACTIONS (9)
  - Loss of personal independence in daily activities [Unknown]
  - Drug ineffective [Unknown]
  - Urinary tract infection [Unknown]
  - Bladder disorder [Unknown]
  - Somnolence [Unknown]
  - Hypoacusis [Unknown]
  - Memory impairment [Unknown]
  - Accidental overdose [Unknown]
  - Expired product administered [Unknown]
